FAERS Safety Report 4571387-4 (Version None)
Quarter: 2005Q1

REPORT INFORMATION
  Report Type: 
  Country: None (occurrence: None)
  Receive Date: 20050205
  Receipt Date: 20050125
  Transmission Date: 20050727
  Serious: Yes (Hospitalization)
  Sender: FDA-Public Use
  Company Number: US-ABBOTT-05P-163-0288038-00

PATIENT
  Sex: Female
  Weight: 104 kg

DRUGS (1)
  1. VICODIN [Suspect]
     Indication: NEUROPATHY
     Route: 048
     Dates: start: 20041201, end: 20041201

REACTIONS (6)
  - BLISTER [None]
  - BURNING SENSATION [None]
  - HYPERSENSITIVITY [None]
  - PAIN [None]
  - PRURITUS [None]
  - RASH [None]
